FAERS Safety Report 21718779 (Version 1)
Quarter: 2022Q4

REPORT INFORMATION
  Report Type: Spontaneous
  Country: US (occurrence: US)
  Receive Date: 20221213
  Receipt Date: 20221213
  Transmission Date: 20230112
  Serious: Yes (Other)
  Sender: FDA-Public Use
  Company Number: US-STRIDES ARCOLAB LIMITED-2022SP011652

PATIENT
  Age: 69 Year
  Sex: Female

DRUGS (9)
  1. PREDNISOLONE [Suspect]
     Active Substance: PREDNISOLONE
     Indication: Mucous membrane pemphigoid
     Dosage: 20 MILLIGRAM, SCHEDULE TO RECEIVE FOR 10 MONTHS, PER DAY
     Route: 065
     Dates: start: 2017
  2. PREDNISOLONE [Suspect]
     Active Substance: PREDNISOLONE
     Dosage: UNK, TAPERED OFF
     Route: 065
     Dates: start: 2022
  3. METHOTREXATE [Suspect]
     Active Substance: METHOTREXATE
     Indication: Mucous membrane pemphigoid
     Dosage: 15 MILLIGRAM, SCHEDULE TO RECEIVE FOR 10 MONTHS, PER WEEK
     Route: 065
     Dates: start: 2017
  4. METHOTREXATE [Suspect]
     Active Substance: METHOTREXATE
     Dosage: 12.5 MILLIGRAM, PER WEEK
     Route: 065
     Dates: start: 202102
  5. METHOTREXATE [Suspect]
     Active Substance: METHOTREXATE
     Dosage: 20 MILLIGRAM, PER WEEK
     Route: 065
     Dates: start: 202108
  6. MYCOPHENOLATE MOFETIL [Suspect]
     Active Substance: MYCOPHENOLATE MOFETIL
     Indication: Mucous membrane pemphigoid
     Dosage: 1000 MILLIGRAM, BID
     Route: 048
     Dates: start: 2018
  7. RITUXIMAB [Suspect]
     Active Substance: RITUXIMAB
     Indication: Mucous membrane pemphigoid
     Dosage: 375 MILLIGRAM/SQ. METER, PER WEEK
     Route: 065
     Dates: start: 2017
  8. RITUXIMAB [Suspect]
     Active Substance: RITUXIMAB
     Dosage: 375 MILLIGRAM/SQ. METER, PER MONTH
     Route: 065
     Dates: start: 2017
  9. RITUXIMAB [Suspect]
     Active Substance: RITUXIMAB
     Dosage: 375 MILLIGRAM/SQ. METER, PER 4 MONTHS, EVERY 4 MONTHS THEREAFTER
     Route: 065
     Dates: start: 2018

REACTIONS (3)
  - Spinal compression fracture [Unknown]
  - Keratitis fungal [Unknown]
  - Off label use [Unknown]

NARRATIVE: CASE EVENT DATE: 20170101
